FAERS Safety Report 7680100-3 (Version None)
Quarter: 2011Q3

REPORT INFORMATION
  Report Type: 
  Country: None (occurrence: None)
  Receive Date: 20110812
  Receipt Date: 20110808
  Transmission Date: 20111222
  Serious: Yes (Death, Other)
  Sender: FDA-Public Use
  Company Number: BR-MEDIMMUNE-MEDI-0013424

PATIENT
  Sex: Male
  Weight: 4.25 kg

DRUGS (6)
  1. FERROUS SULFATE TAB [Concomitant]
  2. SYNAGIS [Suspect]
     Indication: HEART DISEASE CONGENITAL
     Route: 030
     Dates: start: 20110501, end: 20110601
  3. DOMPERIDONE [Concomitant]
  4. PHENOBARBITAL TAB [Concomitant]
  5. DIMETICONE [Concomitant]
  6. PICLES [Concomitant]

REACTIONS (6)
  - CONGENITAL CARDIOVASCULAR ANOMALY [None]
  - MULTI-ORGAN FAILURE [None]
  - CARDIAC ARREST [None]
  - CARDIAC FAILURE CONGESTIVE [None]
  - SEPSIS [None]
  - BACTERIAL INFECTION [None]
